FAERS Safety Report 8308690-8 (Version None)
Quarter: 2012Q2

REPORT INFORMATION
  Report Type: 
  Country: None (occurrence: None)
  Receive Date: 20120424
  Receipt Date: 20120417
  Transmission Date: 20120825
  Serious: Yes (Other)
  Sender: FDA-Public Use
  Company Number: US-US-EMD SERONO, INC.-7127090

PATIENT
  Sex: Female

DRUGS (2)
  1. REBIF [Suspect]
     Indication: PRODUCT USED FOR UNKNOWN INDICATION
     Route: 058
     Dates: start: 20120322
  2. NAPROXEN (ALEVE) [Concomitant]
     Indication: PREMEDICATION

REACTIONS (2)
  - INJECTION SITE ERYTHEMA [None]
  - EPISTAXIS [None]
